FAERS Safety Report 8201569-1 (Version None)
Quarter: 2012Q1

REPORT INFORMATION
  Report Type: 
  Country: None (occurrence: None)
  Receive Date: 20120312
  Receipt Date: 20120304
  Transmission Date: 20120608
  Serious: Yes (Life-Threatening, Other)
  Sender: FDA-Public Use
  Company Number: IL-ROCHE-1037397

PATIENT
  Age: 63 Year
  Sex: Male

DRUGS (10)
  1. LACTULOSE [Concomitant]
  2. IODINE NOS [Suspect]
     Indication: PRODUCT USED FOR UNKNOWN INDICATION
  3. OXYCODONE HCL [Concomitant]
  4. VEMURAFENIB [Suspect]
     Indication: MALIGNANT MELANOMA
     Route: 048
     Dates: start: 20110721, end: 20120118
  5. SIMVASTATIN [Concomitant]
  6. LEVOTHYROXINE SODIUM [Concomitant]
     Dosage: ALSO GIVEN AS ELTROXIN 50 MCG DAILY
  7. TAMSULOSIN HCL [Concomitant]
  8. CRESTOR [Concomitant]
  9. LANSOPRAZOLE [Concomitant]
  10. METFORMIN HCL [Concomitant]

REACTIONS (3)
  - RENAL FAILURE ACUTE [None]
  - LEFT VENTRICULAR DYSFUNCTION [None]
  - HYPOKINESIA [None]
